FAERS Safety Report 5003169-3 (Version None)
Quarter: 2006Q2

REPORT INFORMATION
  Report Type: 
  Country: None (occurrence: None)
  Receive Date: 20060512
  Receipt Date: 20060429
  Transmission Date: 20061013
  Serious: Yes (Hospitalization, Other)
  Sender: FDA-Public Use
  Company Number: 2006050288

PATIENT
  Age: 81 Year
  Sex: Male
  Weight: 77.1115 kg

DRUGS (9)
  1. SUTENT [Suspect]
     Indication: RENAL CELL CARCINOMA STAGE UNSPECIFIED
     Dosage: 50 MG (50 MG, 1 IN 1 D), ORAL
     Route: 048
     Dates: start: 20060330, end: 20060407
  2. IMURAN [Suspect]
     Indication: ILL-DEFINED DISORDER
     Dosage: 150 MG (2 IN 1 D), ORAL
     Route: 048
  3. PREDNISONE TAB [Suspect]
     Indication: ILL-DEFINED DISORDER
     Dosage: 5 MG, QOD, ORAL
     Route: 048
  4. POTASSIUM GLUCONATE TAB [Concomitant]
  5. CALCIUM GLUCONATE [Concomitant]
  6. VITAMIN D [Concomitant]
  7. HYDROCHLOROTHIAZIDE [Concomitant]
  8. LISINOPRIL [Concomitant]
  9. MESTINON [Concomitant]

REACTIONS (16)
  - ADRENAL INSUFFICIENCY [None]
  - DRUG INTERACTION [None]
  - DYSGEUSIA [None]
  - FATIGUE [None]
  - HAEMODIALYSIS [None]
  - HYPERTENSION [None]
  - MULTI-ORGAN DISORDER [None]
  - MYASTHENIA GRAVIS CRISIS [None]
  - OXYGEN SATURATION DECREASED [None]
  - PNEUMONIA [None]
  - PYREXIA [None]
  - RENAL FAILURE [None]
  - RESPIRATORY DISTRESS [None]
  - SEPSIS [None]
  - SPEECH DISORDER [None]
  - THROMBOCYTOPENIA [None]
